FAERS Safety Report 6005171-1 (Version None)
Quarter: 2008Q4

REPORT INFORMATION
  Report Type: 
  Country: None (occurrence: None)
  Receive Date: 20081215
  Receipt Date: 20081204
  Transmission Date: 20090506
  Serious: Yes (Death, Hospitalization, Other)
  Sender: FDA-Public Use
  Company Number: 54916

PATIENT
  Age: 26 Year
  Sex: Male

DRUGS (1)
  1. ADRIAMYCIN PFS [Suspect]
     Indication: NON-HODGKIN'S LYMPHOMA

REACTIONS (9)
  - BRAIN OEDEMA [None]
  - CORNEAL REFLEX DECREASED [None]
  - GAZE PALSY [None]
  - HYPOTONIA [None]
  - LEUKOENCEPHALOPATHY [None]
  - MIOSIS [None]
  - NAUSEA [None]
  - NEUTROPENIA [None]
  - PYREXIA [None]
